FAERS Safety Report 14958594 (Version 2)
Quarter: 2018Q2

REPORT INFORMATION
  Report Type: Spontaneous
  Country: CA (occurrence: CA)
  Receive Date: 20180531
  Receipt Date: 20180607
  Transmission Date: 20180711
  Serious: Yes (Other)
  Sender: FDA-Public Use
  Company Number: CA-CELLTRION INC.-2017CA013657

PATIENT

DRUGS (10)
  1. INFLECTRA [Suspect]
     Active Substance: INFLIXIMAB-DYYB
     Indication: COLITIS ULCERATIVE
     Dosage: 1300 MG, CYCLIC, AT 0,2,6 WEEKS THEN EVERY 8 WEEKS
     Route: 042
     Dates: start: 20171006
  2. INFLECTRA [Suspect]
     Active Substance: INFLIXIMAB-DYYB
     Dosage: 1300 MG, CYCLIC, THEN EVERY 8 WEEKS
     Route: 042
     Dates: start: 20180323
  3. INFLECTRA [Suspect]
     Active Substance: INFLIXIMAB-DYYB
     Dosage: 12.5 MG/KG, CYCLIC (EVERY 8 WEEKS)
     Route: 065
  4. INFLECTRA [Suspect]
     Active Substance: INFLIXIMAB-DYYB
     Dosage: 1300 MG, CYCLIC, THEN EVERY 8 WEEKS
     Route: 042
     Dates: start: 20180323
  5. INFLECTRA [Suspect]
     Active Substance: INFLIXIMAB-DYYB
     Dosage: 1300 MG, EVERY 8 WEEKS
     Route: 042
     Dates: start: 20180521
  6. CORTISONE [Concomitant]
     Active Substance: CORTISONE\HYDROCORTISONE
     Dosage: UNK
  7. INFLECTRA [Suspect]
     Active Substance: INFLIXIMAB-DYYB
     Dosage: 1300 MG, CYCLIC, THEN EVERY 8 WEEKS
     Route: 042
     Dates: start: 20180323
  8. INFLECTRA [Suspect]
     Active Substance: INFLIXIMAB-DYYB
     Dosage: 1300 MG, EVERY 8 WEEKS
     Route: 042
     Dates: start: 20180521
  9. HUMIRA [Concomitant]
     Active Substance: ADALIMUMAB
     Dosage: UNK
  10. INFLECTRA [Suspect]
     Active Substance: INFLIXIMAB-DYYB
     Dosage: 1300 MG, CYCLIC, THEN EVERY 8 WEEKS
     Route: 042
     Dates: start: 20180124

REACTIONS (8)
  - Incorrect drug administration rate [Unknown]
  - Off label use [Unknown]
  - Feeling hot [Unknown]
  - Hypertension [Unknown]
  - Musculoskeletal discomfort [Unknown]
  - Incorrect drug administration duration [Unknown]
  - Blood pressure fluctuation [Unknown]
  - Product use issue [Unknown]

NARRATIVE: CASE EVENT DATE: 20180323
